FAERS Safety Report 15719692 (Version 1)
Quarter: 2018Q4

REPORT INFORMATION
  Report Type: Spontaneous
  Country: TR (occurrence: TR)
  Receive Date: 20181213
  Receipt Date: 20181213
  Transmission Date: 20190205
  Serious: Yes (Hospitalization, Disabling, Other)
  Sender: FDA-Public Use
  Company Number: TR-PFIZER INC-2018509089

PATIENT
  Age: 36 Year
  Sex: Female
  Weight: 70 kg

DRUGS (1)
  1. NEURONTIN [Suspect]
     Active Substance: GABAPENTIN
     Indication: POSTOPERATIVE ANALGESIA
     Dosage: UNK, 2X/DAY
     Route: 048

REACTIONS (12)
  - Speech disorder [Unknown]
  - Dyspnoea [Unknown]
  - Nerve injury [Unknown]
  - Headache [Unknown]
  - Pruritus [Unknown]
  - Erythema [Unknown]
  - Walking disability [Recovered/Resolved]
  - Dysphagia [Unknown]
  - Pain [Unknown]
  - Dyskinesia [Unknown]
  - Gait disturbance [Unknown]
  - Swollen tongue [Unknown]

NARRATIVE: CASE EVENT DATE: 20160127
